FAERS Safety Report 8865463 (Version 1)
Quarter: 2012Q4

REPORT INFORMATION
  Report Type: 
  Country: US (occurrence: US)
  Receive Date: 20121024
  Receipt Date: 20121024
  Transmission Date: 20130627
  Serious: No
  Sender: FDA-Public Use
  Company Number: US-AMGEN-USASP2012003310

PATIENT
  Age: 46 Year
  Sex: Male
  Weight: 88.44 kg

DRUGS (5)
  1. ENBREL [Suspect]
     Indication: PRODUCT USED FOR UNKNOWN INDICATION
     Dosage: 50 mg, qwk
     Route: 058
  2. XANAX [Concomitant]
     Dosage: 0.25 mg, UNK
  3. ASPIRIN [Concomitant]
     Dosage: 81 mg, UNK
  4. NYQUIL [Concomitant]
     Indication: NASOPHARYNGITIS
  5. NYQUIL [Concomitant]
     Indication: INFLUENZA

REACTIONS (1)
  - Nasopharyngitis [Unknown]
